FAERS Safety Report 23852812 (Version 1)
Quarter: 2024Q2

REPORT INFORMATION
  Report Type: Report from Study
  Country: US (occurrence: US)
  Receive Date: 20240514
  Receipt Date: 20240514
  Transmission Date: 20240715
  Serious: Yes (Hospitalization)
  Sender: FDA-Public Use
  Company Number: US-TAKEDA-2021TUS033811

PATIENT
  Sex: Male

DRUGS (3)
  1. VELAGLUCERASE ALFA [Suspect]
     Active Substance: VELAGLUCERASE ALFA
     Indication: Gaucher^s disease
     Dosage: 3600 DOSAGE FORM, Q2WEEKS
     Route: 042
     Dates: start: 20210301
  2. VELAGLUCERASE ALFA [Suspect]
     Active Substance: VELAGLUCERASE ALFA
     Dosage: 4800 INTERNATIONAL UNIT
     Route: 042
     Dates: start: 20211217
  3. VELAGLUCERASE ALFA [Suspect]
     Active Substance: VELAGLUCERASE ALFA
     Dosage: 5200 INTERNATIONAL UNIT, Q2WEEKS
     Route: 042
     Dates: start: 202103

REACTIONS (3)
  - Hip surgery [Unknown]
  - Inappropriate schedule of product administration [Unknown]
  - No adverse event [Unknown]
